FAERS Safety Report 7638697-5 (Version None)
Quarter: 2011Q3

REPORT INFORMATION
  Report Type: 
  Country: None (occurrence: None)
  Receive Date: 20110727
  Receipt Date: 20110720
  Transmission Date: 20111222
  Serious: Yes (Hospitalization)
  Sender: FDA-Public Use
  Company Number: US-ABBOTT-11P-163-0840660-00

PATIENT
  Sex: Female
  Weight: 63.56 kg

DRUGS (3)
  1. CYTOXAN [Concomitant]
     Indication: LUPUS NEPHRITIS
  2. LUPRON DEPOT [Suspect]
     Indication: SYSTEMIC LUPUS ERYTHEMATOSUS
     Dates: start: 20110401
  3. LUPRON DEPOT [Suspect]
     Indication: PROPHYLAXIS

REACTIONS (5)
  - HYPOAESTHESIA [None]
  - BACK PAIN [None]
  - MYOCARDIAL INFARCTION [None]
  - BLOOD PRESSURE INCREASED [None]
  - PAIN IN EXTREMITY [None]
